FAERS Safety Report 16924863 (Version 2)
Quarter: 2020Q3

REPORT INFORMATION
  Report Type: Spontaneous
  Country: US (occurrence: US)
  Receive Date: 20191016
  Receipt Date: 20200730
  Transmission Date: 20201102
  Serious: Yes (Hospitalization)
  Sender: FDA-Public Use
  Company Number: US-RECORDATI RARE DISEASES-2075697

PATIENT
  Sex: Male

DRUGS (8)
  1. FOLBEE [Concomitant]
     Active Substance: CYANOCOBALAMIN\FOLIC ACID\PYRIDOXINE HYDROCHLORIDE
  2. CYANOCOBALAMINE (B12) [Concomitant]
  3. CYSTADANE [Suspect]
     Active Substance: BETAINE
     Indication: PRODUCT USED FOR UNKNOWN INDICATION
  4. NOVOLIN N [Concomitant]
     Active Substance: INSULIN HUMAN
  5. NOVOLOG [Concomitant]
     Active Substance: INSULIN ASPART
  6. CALCIUM [Concomitant]
     Active Substance: CALCIUM
  7. LEVOCARNITINE. [Concomitant]
     Active Substance: LEVOCARNITINE
  8. VITAMIN D [Concomitant]
     Active Substance: VITAMIN D NOS

REACTIONS (3)
  - Intentional product misuse [Unknown]
  - Vomiting [Recovered/Resolved]
  - Dehydration [Recovered/Resolved]
